FAERS Safety Report 8602728-6 (Version None)
Quarter: 2012Q3

REPORT INFORMATION
  Report Type: 
  Country: None (occurrence: None)
  Receive Date: 20120817
  Receipt Date: 20120814
  Transmission Date: 20120928
  Serious: Yes (Other)
  Sender: FDA-Public Use
  Company Number: US-BAYER-2012-072524

PATIENT
  Sex: Male

DRUGS (4)
  1. BETASERON [Suspect]
     Indication: RELAPSING-REMITTING MULTIPLE SCLEROSIS
     Dosage: UNK
     Dates: start: 20040922, end: 20120301
  2. BETASERON [Suspect]
     Dosage: 6 MIU, QOD
     Route: 058
     Dates: start: 20120609
  3. BETASERON [Suspect]
     Dosage: 8 MIU, QOD
     Route: 058
  4. BETASERON [Suspect]
     Dosage: UNK
     Dates: start: 20120331, end: 20120505

REACTIONS (8)
  - INJECTION SITE PAIN [None]
  - ANXIETY [None]
  - DEPRESSED MOOD [None]
  - PSYCHIATRIC SYMPTOM [None]
  - PARALYSIS [None]
  - INSOMNIA [None]
  - LIVER FUNCTION TEST ABNORMAL [None]
  - DEPRESSION [None]
